FAERS Safety Report 7158570-9 (Version None)
Quarter: 2010Q4

REPORT INFORMATION
  Report Type: 
  Country: None (occurrence: None)
  Receive Date: 20101214
  Receipt Date: 20100524
  Transmission Date: 20110411
  Serious: No
  Sender: FDA-Public Use
  Company Number: US-ASTRAZENECA-2010SE23767

PATIENT
  Age: 979 Month
  Sex: Female
  Weight: 81.6 kg

DRUGS (6)
  1. CRESTOR [Suspect]
     Indication: BLOOD CHOLESTEROL INCREASED
     Route: 048
     Dates: start: 20090101
  2. CRESTOR [Suspect]
     Route: 048
     Dates: start: 20100427
  3. PLAVIX [Concomitant]
  4. DIOVAN [Concomitant]
  5. COREG [Concomitant]
  6. WELCHOL [Concomitant]

REACTIONS (4)
  - HAEMORRHAGE [None]
  - JOINT SWELLING [None]
  - MYALGIA [None]
  - PAIN IN EXTREMITY [None]
